FAERS Safety Report 7119136-X (Version None)
Quarter: 2010Q4

REPORT INFORMATION
  Report Type: 
  Country: None (occurrence: None)
  Receive Date: 20101123
  Receipt Date: 20100121
  Transmission Date: 20110411
  Serious: Yes (Other)
  Sender: FDA-Public Use
  Company Number: US-MYLANLABS-2010S1001248

PATIENT
  Age: 50 Year
  Sex: Male

DRUGS (7)
  1. METOPROLOL TARTRATE [Suspect]
     Indication: BLOOD PRESSURE INCREASED
     Route: 048
     Dates: start: 20091101
  2. AMLODIPINE BESYLATE [Suspect]
     Indication: BLOOD PRESSURE INCREASED
     Route: 048
     Dates: start: 20091101
  3. LISINOPRIL AND HYDROCHLOROTHIAZIDE [Suspect]
     Indication: BLOOD PRESSURE INCREASED
  4. CARVEDILOL [Suspect]
     Indication: BLOOD PRESSURE INCREASED
  5. HYDRALAZINE [Suspect]
     Indication: BLOOD PRESSURE INCREASED
  6. CLONIDINE [Suspect]
     Indication: BLOOD PRESSURE INCREASED
     Route: 062
  7. SIMVASTATIN [Concomitant]

REACTIONS (2)
  - BLOOD PRESSURE INCREASED [None]
  - DRUG INEFFECTIVE [None]
